FAERS Safety Report 9966887 (Version 2)
Quarter: 2014Q1

REPORT INFORMATION
  Report Type: Report from Study
  Country: US (occurrence: US)
  Receive Date: 20140305
  Receipt Date: 20140305
  Transmission Date: 20141002
  Serious: No
  Sender: FDA-Public Use
  Company Number: US-ABBVIE-13P-163-1045295-00

PATIENT
  Age: 57 Year
  Sex: Female

DRUGS (19)
  1. HUMIRA [Suspect]
     Indication: RHEUMATOID ARTHRITIS
     Dates: start: 20121207, end: 20130705
  2. VIIBRYD [Concomitant]
     Indication: DEPRESSION
     Dosage: IN THE MORNING
  3. REMERON [Concomitant]
     Indication: DEPRESSION
     Dosage: AT BEDTIME
  4. KLONOPIN [Concomitant]
     Indication: ANXIETY
     Dosage: THREE TIMES A DAY TO FOUR TIMES A DAY
  5. ADDERALL [Concomitant]
     Indication: DISTURBANCE IN ATTENTION
     Dosage: IN THE MORNING
  6. ADDERALL [Concomitant]
     Indication: DISTURBANCE IN ATTENTION
     Dosage: IN THE AFTERNOON
  7. AMBIEN CR [Concomitant]
     Indication: INSOMNIA
     Dosage: 12.5 MG DAILY
  8. AMBIEN CR [Concomitant]
     Dosage: 6.25 MG DAILY
  9. PLAQUENIL [Concomitant]
     Indication: RHEUMATOID ARTHRITIS
     Dosage: IN THE MORNING
  10. NEURONTIN [Concomitant]
     Indication: NEURALGIA
  11. SKELAXIN [Concomitant]
     Indication: MUSCLE RELAXANT THERAPY
  12. HYDROCODONE ACETAMINOPHEN [Concomitant]
     Indication: PAIN
     Dosage: 10/325 MG 1 TABLET EVERY SIX HOURS
  13. MULTI-VITAMIN [Concomitant]
     Indication: PRODUCT USED FOR UNKNOWN INDICATION
     Dosage: EVERY MORNING
  14. CALCIUM PLUS VITAMIN D [Concomitant]
     Indication: PRODUCT USED FOR UNKNOWN INDICATION
     Dosage: 400 IU/600 MG 2 TABLETS DAILY
  15. FISH OIL OMEGA 3 [Concomitant]
     Indication: PRODUCT USED FOR UNKNOWN INDICATION
  16. STOOL SOFTENER [Concomitant]
     Indication: CONSTIPATION
  17. ACETAMINOPHEN [Concomitant]
     Indication: PAIN
  18. FONAPT [Concomitant]
     Indication: RELAXATION THERAPY
     Dosage: AT NOC
  19. FONAPT [Concomitant]
     Indication: INSOMNIA

REACTIONS (7)
  - Joint swelling [Not Recovered/Not Resolved]
  - Drug ineffective [Not Recovered/Not Resolved]
  - Local swelling [Not Recovered/Not Resolved]
  - Grip strength decreased [Not Recovered/Not Resolved]
  - Blood cholesterol increased [Not Recovered/Not Resolved]
  - Weight increased [Not Recovered/Not Resolved]
  - Joint swelling [Not Recovered/Not Resolved]
